FAERS Safety Report 6059903-7 (Version None)
Quarter: 2009Q1

REPORT INFORMATION
  Report Type: 
  Country: None (occurrence: None)
  Receive Date: 20090130
  Receipt Date: 20090113
  Transmission Date: 20090719
  Serious: No
  Sender: FDA-Public Use
  Company Number: US-ABBOTT-09P-163-0497791-00

PATIENT
  Sex: Male

DRUGS (9)
  1. LUPRON DEPOT [Suspect]
     Indication: PROSTATE CANCER
     Dosage: UNSURE OF STRENGTH
     Route: 030
     Dates: start: 20060801, end: 20080501
  2. METOPROLOL [Concomitant]
     Indication: HYPERTENSION
     Route: 048
  3. LOVASTATIN [Concomitant]
     Indication: BLOOD CHOLESTEROL INCREASED
     Route: 048
  4. FINASTERIDE [Concomitant]
     Indication: PROSTATIC DISORDER
     Route: 048
  5. FINASTERIDE [Concomitant]
     Indication: MICTURITION DISORDER
  6. FLOMAX [Concomitant]
     Indication: MICTURITION DISORDER
     Route: 048
  7. LORAZEPAM [Concomitant]
     Indication: ANXIETY
     Route: 048
  8. VICODIN [Concomitant]
     Indication: BACK PAIN
     Route: 048
  9. VICODIN [Concomitant]
     Indication: RENAL SURGERY

REACTIONS (2)
  - HOT FLUSH [None]
  - NIPPLE PAIN [None]
